FAERS Safety Report 4302907-2 (Version None)
Quarter: 2004Q1

REPORT INFORMATION
  Report Type: 
  Country: None (occurrence: None)
  Receive Date: 20040220
  Receipt Date: 20040203
  Transmission Date: 20041129
  Serious: Yes (Life-Threatening, Hospitalization)
  Sender: FDA-Public Use
  Company Number: IBF20040001

PATIENT
  Age: 68 Year
  Sex: Female

DRUGS (4)
  1. IBUPROFEN [Suspect]
     Indication: PAIN
     Dosage: 2-3 TABS Q4-5H PO
     Route: 048
     Dates: start: 20030101, end: 20030101
  2. HYDROCHLOROTHIAZIDE [Concomitant]
  3. CONJUGATED EQUINE ESTROGENS [Concomitant]
  4. ASPIRIN [Concomitant]

REACTIONS (32)
  - ASPARTATE AMINOTRANSFERASE INCREASED [None]
  - ATELECTASIS [None]
  - BLOOD SODIUM DECREASED [None]
  - BODY TEMPERATURE INCREASED [None]
  - CHEST X-RAY ABNORMAL [None]
  - DIALYSIS [None]
  - DRUG HYPERSENSITIVITY [None]
  - DRUG INEFFECTIVE [None]
  - ELECTROCARDIOGRAM QT CORRECTED INTERVAL PROLONGED [None]
  - ELECTROCARDIOGRAM ST-T SEGMENT ABNORMAL [None]
  - FATIGUE [None]
  - GLOMERULONEPHRITIS FOCAL [None]
  - GLOMERULONEPHRITIS MINIMAL LESION [None]
  - INSOMNIA [None]
  - MALAISE [None]
  - NAUSEA [None]
  - NEPHRITIS INTERSTITIAL [None]
  - NEPHROLITHIASIS [None]
  - NEPHROTIC SYNDROME [None]
  - OEDEMA PERIPHERAL [None]
  - OLIGURIA [None]
  - PAIN [None]
  - PERICARDIAL EFFUSION [None]
  - PERICARDIAL FIBROSIS [None]
  - PLEURAL FIBROSIS [None]
  - PROTEIN URINE PRESENT [None]
  - PRURITUS [None]
  - PYREXIA [None]
  - RENAL FAILURE ACUTE [None]
  - RENAL TUBULAR NECROSIS [None]
  - VOMITING [None]
  - WHITE BLOOD CELL COUNT INCREASED [None]
